FAERS Safety Report 4727592-7 (Version None)
Quarter: 2005Q3

REPORT INFORMATION
  Report Type: 
  Country: None (occurrence: None)
  Receive Date: 20050727
  Receipt Date: 20050727
  Transmission Date: 20060218
  Serious: Yes (Hospitalization)
  Sender: FDA-Public Use
  Company Number: None

PATIENT
  Age: 50 Year
  Sex: Male
  Weight: 169 kg

DRUGS (1)
  1. TOPAMAX [Suspect]
     Indication: PAIN MANAGEMENT
     Dosage: 100 MG   BID   ORAL
     Route: 048

REACTIONS (5)
  - AMMONIA INCREASED [None]
  - BLOOD BICARBONATE DECREASED [None]
  - CONFUSIONAL STATE [None]
  - MENTAL STATUS CHANGES [None]
  - SOMNOLENCE [None]
